FAERS Safety Report 9808087 (Version 2)
Quarter: 2014Q1

REPORT INFORMATION
  Report Type: Spontaneous
  Country: US (occurrence: US)
  Receive Date: 20140110
  Receipt Date: 20140204
  Transmission Date: 20141002
  Serious: Yes (Death, Hospitalization)
  Sender: FDA-Public Use
  Company Number: US-PFIZER INC-2014003510

PATIENT
  Age: 70 Year
  Sex: Male
  Weight: 68.93 kg

DRUGS (2)
  1. VFEND [Suspect]
     Indication: PNEUMONIA
     Dosage: 200 MG, 2X/DAY
     Dates: start: 20130821
  2. VFEND [Suspect]
     Indication: BRONCHOPULMONARY ASPERGILLOSIS

REACTIONS (7)
  - Septic shock [Fatal]
  - Multi-organ failure [Fatal]
  - Drug ineffective [Fatal]
  - Femur fracture [Unknown]
  - Fall [Unknown]
  - Blood creatinine decreased [Unknown]
  - Muscular weakness [Unknown]
